FAERS Safety Report 9496453 (Version 2)
Quarter: 2013Q4

REPORT INFORMATION
  Report Type: Spontaneous
  Country: JP (occurrence: JP)
  Receive Date: 20130904
  Receipt Date: 20131224
  Transmission Date: 20140711
  Serious: No
  Sender: FDA-Public Use
  Company Number: CHNY2013JP001847

PATIENT
  Sex: Male

DRUGS (2)
  1. LAMISIL [Suspect]
     Route: 047
  2. LAMISIL PLUS SOLUTION [Suspect]
     Route: 047

REACTIONS (2)
  - Accidental exposure to product [Unknown]
  - Incorrect route of drug administration [Unknown]
